FAERS Safety Report 11787424 (Version 2)
Quarter: 2015Q4

REPORT INFORMATION
  Report Type: Spontaneous
  Country: KR (occurrence: KR)
  Receive Date: 20151130
  Receipt Date: 20151207
  Transmission Date: 20160305
  Serious: Yes (Hospitalization, Other)
  Sender: FDA-Public Use
  Company Number: KR-SA-2015SA188537

PATIENT
  Age: 56 Year
  Sex: Female

DRUGS (58)
  1. OXALIPLATIN. [Suspect]
     Active Substance: OXALIPLATIN
     Indication: METASTASES TO LYMPH NODES
     Dosage: INFUSION
     Route: 042
     Dates: start: 200805
  2. OXALIPLATIN. [Suspect]
     Active Substance: OXALIPLATIN
     Indication: METASTASIS
     Dosage: DAY 1
     Route: 042
     Dates: start: 201301
  3. OXALIPLATIN. [Suspect]
     Active Substance: OXALIPLATIN
     Indication: METASTASES TO LYMPH NODES
     Dosage: DAY 1
     Route: 042
     Dates: start: 2013
  4. OXALIPLATIN. [Suspect]
     Active Substance: OXALIPLATIN
     Indication: METASTASIS
     Route: 042
  5. LEUCOVORIN. [Concomitant]
     Active Substance: LEUCOVORIN
     Indication: METASTASIS
     Dosage: ON DAY 1
     Dates: start: 200805
  6. LEUCOVORIN. [Concomitant]
     Active Substance: LEUCOVORIN
     Indication: ADENOCARCINOMA OF COLON
     Dates: start: 201004
  7. FLUOROURACIL. [Concomitant]
     Active Substance: FLUOROURACIL
     Indication: METASTASIS
     Dosage: ON DAY 1 FOLLOWED BY CONTINUOUS INFUSION OF 1,200 MG/M2 ON DAYS 1 AND 2
     Route: 040
     Dates: start: 200910
  8. CAPECITABINE. [Concomitant]
     Active Substance: CAPECITABINE
     Dates: start: 201004
  9. OXALIPLATIN. [Suspect]
     Active Substance: OXALIPLATIN
     Indication: METASTASIS
     Dosage: INFUSION
     Route: 042
     Dates: start: 200805
  10. OXALIPLATIN. [Suspect]
     Active Substance: OXALIPLATIN
     Indication: METASTASES TO LYMPH NODES
     Dosage: INFUSION
     Route: 042
     Dates: start: 201004
  11. OXALIPLATIN. [Suspect]
     Active Substance: OXALIPLATIN
     Indication: METASTASES TO LYMPH NODES
     Dosage: INFUSION
     Route: 042
     Dates: start: 201110
  12. LEUCOVORIN. [Concomitant]
     Active Substance: LEUCOVORIN
     Indication: ADENOCARCINOMA OF COLON
     Dosage: ON DAY 1
     Dates: start: 200805
  13. FLUOROURACIL. [Concomitant]
     Active Substance: FLUOROURACIL
     Indication: METASTASES TO LYMPH NODES
     Route: 042
     Dates: start: 201110
  14. OXALIPLATIN. [Suspect]
     Active Substance: OXALIPLATIN
     Indication: ADENOCARCINOMA OF COLON
     Dosage: INFUSION
     Route: 042
     Dates: start: 200805
  15. OXALIPLATIN. [Suspect]
     Active Substance: OXALIPLATIN
     Indication: METASTASIS
     Dosage: INFUSION
     Route: 042
     Dates: start: 201110
  16. OXALIPLATIN. [Suspect]
     Active Substance: OXALIPLATIN
     Indication: METASTASES TO LYMPH NODES
     Route: 042
  17. LEUCOVORIN. [Concomitant]
     Active Substance: LEUCOVORIN
     Indication: METASTASES TO LYMPH NODES
     Dates: start: 201004
  18. LEUCOVORIN. [Concomitant]
     Active Substance: LEUCOVORIN
     Indication: METASTASIS
     Dates: start: 201004
  19. FLUOROURACIL. [Concomitant]
     Active Substance: FLUOROURACIL
     Indication: ADENOCARCINOMA OF COLON
     Dosage: ON DAY 1 FOLLOWED BY CONTINUOUS INFUSION OF 1,200 MG/M 2/DAY ON DAYS 1 AND 2
     Route: 040
     Dates: start: 200805
  20. FLUOROURACIL. [Concomitant]
     Active Substance: FLUOROURACIL
     Indication: METASTASES TO LYMPH NODES
     Dosage: ON DAY 1 FOLLOWED BY CONTINUOUS INFUSION OF 1,200 MG/M2 ON DAYS 1 AND 2
     Route: 040
     Dates: start: 200910
  21. FLUOROURACIL. [Concomitant]
     Active Substance: FLUOROURACIL
     Indication: DISEASE RECURRENCE
     Route: 042
     Dates: start: 201110
  22. FLUOROURACIL. [Concomitant]
     Active Substance: FLUOROURACIL
     Indication: DISEASE RECURRENCE
     Dosage: ON DAY 1
     Route: 040
     Dates: start: 201301
  23. OXALIPLATIN. [Suspect]
     Active Substance: OXALIPLATIN
     Indication: ADENOCARCINOMA OF COLON
     Dosage: INFUSION
     Route: 042
     Dates: start: 201004
  24. OXALIPLATIN. [Suspect]
     Active Substance: OXALIPLATIN
     Indication: METASTASIS
     Dosage: DAY 1
     Route: 042
     Dates: start: 2013
  25. LEUCOVORIN. [Concomitant]
     Active Substance: LEUCOVORIN
     Indication: ADENOCARCINOMA OF COLON
     Dosage: ON DAY 1
     Dates: start: 201110
  26. FLUOROURACIL. [Concomitant]
     Active Substance: FLUOROURACIL
     Indication: DISEASE RECURRENCE
     Dosage: ON DAY 1 FOLLOWED BY CONTINUOUS INFUSION OF 1,200 MG/M 2/DAY ON DAYS 1 AND 2
     Route: 040
     Dates: start: 200805
  27. FLUOROURACIL. [Concomitant]
     Active Substance: FLUOROURACIL
     Indication: ADENOCARCINOMA OF COLON
     Dosage: ON DAY 1 FOLLOWED BY CONTINUOUS INFUSION OF 1,200 MG/M2 ON DAYS 1 AND 2
     Route: 040
     Dates: start: 200910
  28. OXALIPLATIN. [Suspect]
     Active Substance: OXALIPLATIN
     Indication: METASTASIS
     Dosage: INFUSION
     Route: 042
     Dates: start: 201004
  29. OXALIPLATIN. [Suspect]
     Active Substance: OXALIPLATIN
     Indication: ADENOCARCINOMA OF COLON
     Dosage: INFUSION
     Route: 042
     Dates: start: 201110
  30. OXALIPLATIN. [Suspect]
     Active Substance: OXALIPLATIN
     Indication: ADENOCARCINOMA OF COLON
     Dosage: DAY 1
     Route: 042
     Dates: start: 201301
  31. OXALIPLATIN. [Suspect]
     Active Substance: OXALIPLATIN
     Indication: ADENOCARCINOMA OF COLON
     Dosage: DAY 1
     Route: 042
     Dates: start: 2013
  32. LEUCOVORIN. [Concomitant]
     Active Substance: LEUCOVORIN
     Indication: ADENOCARCINOMA OF COLON
     Dates: start: 2013
  33. LEUCOVORIN. [Concomitant]
     Active Substance: LEUCOVORIN
     Indication: METASTASES TO LYMPH NODES
     Dates: start: 2013
  34. FLUOROURACIL. [Concomitant]
     Active Substance: FLUOROURACIL
     Indication: METASTASIS
     Dosage: ON DAY 1 FOLLOWED BY CONTINUOUS INFUSION OF 1,200 MG/M 2/DAY ON DAYS 1 AND 2
     Route: 040
     Dates: start: 200805
  35. FLUOROURACIL. [Concomitant]
     Active Substance: FLUOROURACIL
     Indication: DISEASE RECURRENCE
     Dosage: ON DAY 1 FOLLOWED BY CONTINUOUS INFUSION OF 1,200 MG/M2 ON DAYS 1 AND 2
     Route: 040
     Dates: start: 200910
  36. FLUOROURACIL. [Concomitant]
     Active Substance: FLUOROURACIL
     Indication: ADENOCARCINOMA OF COLON
     Route: 042
     Dates: start: 201110
  37. FLUOROURACIL. [Concomitant]
     Active Substance: FLUOROURACIL
     Indication: ADENOCARCINOMA OF COLON
     Dosage: CONTINUOUS INFUSION ON DAY 1 AND 2, EVERY CYCLE
     Route: 041
     Dates: start: 201301
  38. FLUOROURACIL. [Concomitant]
     Active Substance: FLUOROURACIL
     Indication: METASTASIS
     Dosage: CONTINUOUS INFUSION ON DAY 1 AND 2, EVERY CYCLE
     Route: 041
     Dates: start: 201301
  39. LEUCOVORIN. [Concomitant]
     Active Substance: LEUCOVORIN
     Indication: METASTASES TO LYMPH NODES
     Dosage: ON DAY 1
     Dates: start: 200912
  40. LEUCOVORIN. [Concomitant]
     Active Substance: LEUCOVORIN
     Indication: METASTASES TO LYMPH NODES
     Dosage: ON DAY 1
     Dates: start: 201110
  41. LEUCOVORIN. [Concomitant]
     Active Substance: LEUCOVORIN
     Indication: METASTASES TO LYMPH NODES
     Dosage: ON DAY 1
     Dates: start: 201301
  42. FLUOROURACIL. [Concomitant]
     Active Substance: FLUOROURACIL
     Indication: METASTASES TO LYMPH NODES
     Dosage: ON DAY 1 FOLLOWED BY CONTINUOUS INFUSION OF 1,200 MG/M 2/DAY ON DAYS 1 AND 2
     Route: 040
     Dates: start: 200805
  43. FLUOROURACIL. [Concomitant]
     Active Substance: FLUOROURACIL
     Indication: METASTASIS
     Dosage: ON DAY 1
     Route: 040
     Dates: start: 201301
  44. LEUCOVORIN. [Concomitant]
     Active Substance: LEUCOVORIN
     Indication: METASTASES TO LYMPH NODES
     Dosage: ON DAY 1
     Dates: start: 200805
  45. LEUCOVORIN. [Concomitant]
     Active Substance: LEUCOVORIN
     Indication: ADENOCARCINOMA OF COLON
     Dosage: ON DAY 1
     Dates: start: 200912
  46. LEUCOVORIN. [Concomitant]
     Active Substance: LEUCOVORIN
     Indication: ADENOCARCINOMA OF COLON
     Dosage: ON DAY 1
     Dates: start: 201301
  47. FLUOROURACIL. [Concomitant]
     Active Substance: FLUOROURACIL
     Indication: METASTASES TO LYMPH NODES
     Dosage: ON DAY 1
     Route: 040
     Dates: start: 201301
  48. FLUOROURACIL. [Concomitant]
     Active Substance: FLUOROURACIL
     Indication: METASTASES TO LYMPH NODES
     Dosage: CONTINUOUS INFUSION ON DAY 1 AND 2, EVERY CYCLE
     Route: 041
     Dates: start: 201301
  49. FLUOROURACIL. [Concomitant]
     Active Substance: FLUOROURACIL
     Indication: DISEASE RECURRENCE
     Dosage: CONTINUOUS INFUSION ON DAY 1 AND 2, EVERY CYCLE
     Route: 041
     Dates: start: 201301
  50. IRINOTECAN [Concomitant]
     Active Substance: IRINOTECAN
     Dosage: ON DAY 1
     Dates: start: 200912
  51. OXALIPLATIN. [Suspect]
     Active Substance: OXALIPLATIN
     Indication: METASTASES TO LYMPH NODES
     Dosage: DAY 1
     Route: 042
     Dates: start: 201301
  52. OXALIPLATIN. [Suspect]
     Active Substance: OXALIPLATIN
     Indication: ADENOCARCINOMA OF COLON
     Route: 042
  53. LEUCOVORIN. [Concomitant]
     Active Substance: LEUCOVORIN
     Indication: METASTASIS
     Dosage: ON DAY 1
     Dates: start: 200912
  54. LEUCOVORIN. [Concomitant]
     Active Substance: LEUCOVORIN
     Indication: METASTASIS
     Dosage: ON DAY 1
     Dates: start: 201110
  55. LEUCOVORIN. [Concomitant]
     Active Substance: LEUCOVORIN
     Indication: METASTASIS
     Dosage: ON DAY 1
     Dates: start: 201301
  56. LEUCOVORIN. [Concomitant]
     Active Substance: LEUCOVORIN
     Indication: METASTASIS
     Dates: start: 2013
  57. FLUOROURACIL. [Concomitant]
     Active Substance: FLUOROURACIL
     Indication: METASTASIS
     Route: 042
     Dates: start: 201110
  58. FLUOROURACIL. [Concomitant]
     Active Substance: FLUOROURACIL
     Indication: ADENOCARCINOMA OF COLON
     Dosage: ON DAY 1
     Route: 040
     Dates: start: 201301

REACTIONS (6)
  - Petechiae [Recovering/Resolving]
  - Gingival bleeding [Recovering/Resolving]
  - White blood cell count decreased [Recovered/Resolved]
  - Back pain [Recovered/Resolved]
  - Immune thrombocytopenic purpura [Recovered/Resolved]
  - Autoimmune neutropenia [Recovered/Resolved]

NARRATIVE: CASE EVENT DATE: 2013
